FAERS Safety Report 12955708 (Version 1)
Quarter: 2016Q4

REPORT INFORMATION
  Report Type: Spontaneous
  Country: US (occurrence: US)
  Receive Date: 20161117
  Receipt Date: 20161117
  Transmission Date: 20170207
  Serious: Yes (Hospitalization)
  Sender: FDA-Public Use
  Company Number: None

PATIENT
  Age: 65 Year
  Sex: Male

DRUGS (17)
  1. DOCUSATE [Concomitant]
     Active Substance: DOCUSATE
  2. SENNA [Concomitant]
     Active Substance: SENNA LEAF\SENNOSIDES\SENNOSIDES A AND B
  3. LEUCOVORIN. [Concomitant]
     Active Substance: LEUCOVORIN
  4. RANITIDINE. [Concomitant]
     Active Substance: RANITIDINE
  5. METHOTREXATE. [Suspect]
     Active Substance: METHOTREXATE
     Indication: LYMPHOMA
     Route: 042
     Dates: start: 20160814, end: 20160814
  6. ASPIRIN. [Concomitant]
     Active Substance: ASPIRIN
  7. ONDANSETRON [Concomitant]
     Active Substance: ONDANSETRON
  8. POTASSIUM PHOSPHATE [Concomitant]
     Active Substance: POTASSIUM PHOSPHATE
  9. METOPROLOL TARTRATE. [Concomitant]
     Active Substance: METOPROLOL TARTRATE
  10. ACYCLOVIR. [Concomitant]
     Active Substance: ACYCLOVIR
  11. INSULIN ASPART [Concomitant]
     Active Substance: INSULIN ASPART
  12. ISOSORBIDE MONONITRATE. [Concomitant]
     Active Substance: ISOSORBIDE MONONITRATE
  13. POLYETHYLENE GLYCOL 3350. [Concomitant]
     Active Substance: POLYETHYLENE GLYCOL 3350
  14. FINASTERIDE. [Concomitant]
     Active Substance: FINASTERIDE
  15. ENOXAPARIN [Concomitant]
     Active Substance: ENOXAPARIN
  16. ATORVASTATIN [Concomitant]
     Active Substance: ATORVASTATIN
  17. DEXAMETHASONE. [Concomitant]
     Active Substance: DEXAMETHASONE

REACTIONS (2)
  - Drug level increased [None]
  - Blood creatinine increased [None]

NARRATIVE: CASE EVENT DATE: 20160815
